FAERS Safety Report 6191689-8 (Version None)
Quarter: 2009Q2

REPORT INFORMATION
  Report Type: 
  Country: None (occurrence: None)
  Receive Date: 20090515
  Receipt Date: 20090514
  Transmission Date: 20091009
  Serious: Yes (Death, Life-Threatening)
  Sender: FDA-Public Use
  Company Number: PHHY2009JP13482

PATIENT
  Sex: Male

DRUGS (8)
  1. ZOLEDRONIC ACID [Suspect]
     Indication: METASTASES TO BONE
     Dosage: 4 MG EVERY FOUR WEEKS
     Dates: start: 20080325, end: 20080718
  2. PROSTAL [Concomitant]
     Dosage: 100 MG, UNK
     Route: 048
     Dates: start: 20080320, end: 20080703
  3. OXYCONTIN [Concomitant]
     Dosage: 20 MG, UNK
     Route: 048
     Dates: start: 20080401
  4. OXYCONTIN [Concomitant]
     Dosage: 40 MG, UNK
     Route: 048
  5. OXYCONTIN [Concomitant]
     Dosage: 60 MG, UNK
     Route: 048
  6. OXYCONTIN [Concomitant]
     Dosage: 80 MG, UNK
     Route: 048
     Dates: end: 20080710
  7. TRYPTANOL [Concomitant]
     Dosage: 20 MG, UNK
     Route: 048
     Dates: start: 20080417, end: 20080813
  8. ETHINYLESTRADIOL [Concomitant]
     Dosage: 3 MG, UNK
     Route: 048
     Dates: start: 20080704, end: 20080709

REACTIONS (3)
  - HYPOCALCAEMIA [None]
  - MALIGNANT NEOPLASM PROGRESSION [None]
  - RENAL IMPAIRMENT [None]
